FAERS Safety Report 7776316-8 (Version None)
Quarter: 2011Q3

REPORT INFORMATION
  Report Type: 
  Country: None (occurrence: None)
  Receive Date: 20110921
  Receipt Date: 20110921
  Transmission Date: 20111222
  Serious: No
  Sender: FDA-Public Use
  Company Number: None

PATIENT
  Sex: Male
  Weight: 35.82 kg

DRUGS (1)
  1. NUTROPIN AQ [Suspect]
     Indication: DWARFISM
     Dosage: 1.5 DAILY SQ
     Route: 058
     Dates: start: 20110527, end: 20110907

REACTIONS (2)
  - PARAESTHESIA [None]
  - HYPOAESTHESIA [None]
